FAERS Safety Report 26000888 (Version 1)
Quarter: 2025Q4

REPORT INFORMATION
  Report Type: Spontaneous
  Country: CA (occurrence: CA)
  Receive Date: 20251105
  Receipt Date: 20251105
  Transmission Date: 20260118
  Serious: Yes (Other)
  Sender: TEVA
  Company Number: CA-TEVA-VS-3388327

PATIENT
  Age: 36 Year
  Sex: Female

DRUGS (3)
  1. DOXYCYCLINE [Suspect]
     Active Substance: DOXYCYCLINE
     Indication: Antibiotic therapy
     Route: 065
  2. SULFAMETHOXAZOLE [Concomitant]
     Active Substance: SULFAMETHOXAZOLE
     Indication: Product used for unknown indication
     Route: 065
  3. MEROPENEM [Concomitant]
     Active Substance: MEROPENEM
     Indication: Product used for unknown indication
     Dosage: DOSE FORM:POWDER FOR SOLUTION INTRAVENOUS
     Route: 065

REACTIONS (4)
  - Neutropenia [Unknown]
  - Hepatic enzyme increased [Unknown]
  - Rash [Unknown]
  - Drug hypersensitivity [Unknown]
